FAERS Safety Report 4428212-1 (Version None)
Quarter: 2004Q3

REPORT INFORMATION
  Report Type: 
  Country: None (occurrence: None)
  Receive Date: 20040726
  Receipt Date: 20040316
  Transmission Date: 20050211
  Serious: No
  Sender: FDA-Public Use
  Company Number: USA040362213

PATIENT
  Age: 58 Year
  Sex: Female

DRUGS (4)
  1. FORTEO [Suspect]
     Indication: OSTEOPOROSIS
     Dosage: 20 U DAY
     Dates: start: 20040311, end: 20040316
  2. PROTONIX [Concomitant]
  3. ULTRAM [Concomitant]
  4. XANAX [Concomitant]

REACTIONS (3)
  - ABDOMINAL PAIN [None]
  - ASTHENIA [None]
  - HEADACHE [None]
